FAERS Safety Report 24444104 (Version 4)
Quarter: 2024Q4

REPORT INFORMATION
  Report Type: Spontaneous
  Country: AT (occurrence: AT)
  Receive Date: 20241016
  Receipt Date: 20241119
  Transmission Date: 20250114
  Serious: Yes (Hospitalization, Other)
  Sender: MERCK
  Company Number: AT-009507513-2410AUT004952

PATIENT
  Age: 74 Year
  Sex: Male

DRUGS (4)
  1. PEMBROLIZUMAB [Suspect]
     Active Substance: PEMBROLIZUMAB
     Indication: Clear cell renal cell carcinoma
     Dosage: 200MG EVERY 3 WEEKS
     Dates: start: 20220804
  2. LENVATINIB MESYLATE [Suspect]
     Active Substance: LENVATINIB MESYLATE
     Indication: Clear cell renal cell carcinoma
     Dosage: 20MG 1-0-0
     Route: 048
     Dates: start: 202301, end: 202307
  3. LENVATINIB MESYLATE [Suspect]
     Active Substance: LENVATINIB MESYLATE
     Dosage: 20MG 1-0-0
     Route: 048
     Dates: start: 2023, end: 202311
  4. LENVATINIB MESYLATE [Suspect]
     Active Substance: LENVATINIB MESYLATE
     Dosage: 20MG 1-0-0
     Route: 048
     Dates: start: 202401

REACTIONS (8)
  - Renal cell carcinoma recurrent [Recovered/Resolved]
  - Shunt thrombosis [Unknown]
  - Shunt infection [Recovered/Resolved]
  - Wound haemorrhage [Recovered/Resolved]
  - Impaired healing [Recovered/Resolved]
  - Hypothyroidism [Recovered/Resolved]
  - Pleural effusion [Unknown]
  - Drug effect less than expected [Unknown]

NARRATIVE: CASE EVENT DATE: 20221214
